FAERS Safety Report 6881454-8 (Version None)
Quarter: 2010Q3

REPORT INFORMATION
  Report Type: 
  Country: None (occurrence: None)
  Receive Date: 20100728
  Receipt Date: 20100728
  Transmission Date: 20110219
  Serious: No
  Sender: FDA-Public Use
  Company Number: None

PATIENT

DRUGS (1)
  1. TERBINAFINE HCL [Suspect]

REACTIONS (3)
  - MALAISE [None]
  - PHARYNGEAL OEDEMA [None]
  - URTICARIA [None]
